FAERS Safety Report 18544063 (Version 1)
Quarter: 2020Q4

REPORT INFORMATION
  Report Type: Spontaneous
  Country: US (occurrence: US)
  Receive Date: 20201125
  Receipt Date: 20201125
  Transmission Date: 20210114
  Serious: Yes (Other)
  Sender: FDA-Public Use
  Company Number: US-AMGEN-USASP2020187287

PATIENT

DRUGS (1)
  1. CARFILZOMIB [Suspect]
     Active Substance: CARFILZOMIB
     Indication: PLASMA CELL MYELOMA
     Dosage: UNK
     Route: 065

REACTIONS (9)
  - Dyspnoea [Unknown]
  - Cardiac failure [Unknown]
  - Hypertension [Unknown]
  - Chest pain [Unknown]
  - Atrioventricular block [Unknown]
  - Arrhythmia [Unknown]
  - Myocardial ischaemia [Unknown]
  - Syncope [Unknown]
  - Oedema [Unknown]
